FAERS Safety Report 12823862 (Version 1)
Quarter: 2016Q4

REPORT INFORMATION
  Report Type: Spontaneous
  Country: US (occurrence: US)
  Receive Date: 20161006
  Receipt Date: 20161006
  Transmission Date: 20170207
  Serious: No
  Sender: FDA-Public Use
  Company Number: None

PATIENT
  Age: 68 Year
  Sex: Female

DRUGS (15)
  1. LEVOCARNITINE. [Concomitant]
     Active Substance: LEVOCARNITINE
  2. VITAMIN C [Concomitant]
     Active Substance: ASCORBIC ACID
  3. FOLIC ACID. [Concomitant]
     Active Substance: FOLIC ACID
  4. CYCLOBENZAPRINE [Concomitant]
     Active Substance: CYCLOBENZAPRINE
  5. IBUPROFEN. [Concomitant]
     Active Substance: IBUPROFEN
  6. OTEZLA [Suspect]
     Active Substance: APREMILAST
     Indication: PSORIATIC ARTHROPATHY
     Dosage: ?          QUANTITY:1 TABLET(S);?
     Route: 048
  7. CLONAZEPAM. [Concomitant]
     Active Substance: CLONAZEPAM
  8. LOVAZA [Concomitant]
     Active Substance: OMEGA-3-ACID ETHYL ESTERS
  9. SULFASALAZINE. [Concomitant]
     Active Substance: SULFASALAZINE
  10. EPIPEN [Concomitant]
     Active Substance: EPINEPHRINE
  11. NIACIN. [Concomitant]
     Active Substance: NIACIN
  12. COZAAR [Concomitant]
     Active Substance: LOSARTAN POTASSIUM
  13. RESTASIS [Concomitant]
     Active Substance: CYCLOSPORINE
  14. PROBIOTIC [Concomitant]
     Active Substance: PROBIOTICS NOS
  15. FERROUS SULFATE. [Concomitant]
     Active Substance: FERROUS SULFATE

REACTIONS (2)
  - Fatigue [None]
  - Migraine [None]

NARRATIVE: CASE EVENT DATE: 20160909
